FAERS Safety Report 21051431 (Version 3)
Quarter: 2022Q3

REPORT INFORMATION
  Report Type: Spontaneous
  Country: US (occurrence: US)
  Receive Date: 20220707
  Receipt Date: 20220811
  Transmission Date: 20221026
  Serious: No
  Sender: FDA-Public Use
  Company Number: US-AMGEN-USASP2022112325

PATIENT
  Age: 59 Year
  Sex: Female

DRUGS (7)
  1. LUMAKRAS [Suspect]
     Active Substance: SOTORASIB
     Indication: Lung neoplasm malignant
     Dosage: 960 MILLIGRAM, QD
     Route: 048
     Dates: start: 20220617
  2. VITAMIN B COMPLEX [Concomitant]
     Active Substance: CYANOCOBALAMIN\DEXPANTHENOL\NIACINAMIDE\PYRIDOXINE HYDROCHLORIDE\RIBOFLAVIN 5^-PHOSPHATE SODIUM\THIA
     Dosage: UNK
  3. FOLIC ACID [Concomitant]
     Active Substance: FOLIC ACID
     Dosage: 800 MICROGRAM
  4. FUROSEMIDE [Concomitant]
     Active Substance: FUROSEMIDE
     Dosage: 80 MILLIGRAM
  5. LISINOPRIL [Concomitant]
     Active Substance: LISINOPRIL
     Dosage: 40 MILLIGRAM
  6. METFORMIN [Concomitant]
     Active Substance: METFORMIN HYDROCHLORIDE
     Dosage: 1000 MILLIGRAM
  7. METOPROLOL [Concomitant]
     Active Substance: METOPROLOL
     Dosage: 200 MILLIGRAM

REACTIONS (3)
  - Skin discolouration [Not Recovered/Not Resolved]
  - Diarrhoea [Recovered/Resolved]
  - Nausea [Unknown]

NARRATIVE: CASE EVENT DATE: 20220601
